FAERS Safety Report 21561164 (Version 4)
Quarter: 2022Q4

REPORT INFORMATION
  Report Type: Spontaneous
  Country: GR (occurrence: GR)
  Receive Date: 20221107
  Receipt Date: 20221230
  Transmission Date: 20230112
  Serious: No
  Sender: FDA-Public Use
  Company Number: GR-PFIZER INC-PV202200086726

PATIENT
  Age: 12 Year
  Sex: Male
  Weight: 58 kg

DRUGS (1)
  1. GENOTROPIN [Suspect]
     Active Substance: SOMATROPIN
     Indication: Growth hormone deficiency
     Dosage: 1.8 MG FOR 5 DAYS, SATURDAY DAY OFF, SUNDAY 2 MG / 12 MG PEN
     Route: 058
     Dates: start: 20210420

REACTIONS (4)
  - Device use error [Unknown]
  - Device breakage [Unknown]
  - Device information output issue [Unknown]
  - Drug dose omission by device [Unknown]

NARRATIVE: CASE EVENT DATE: 20221019
